FAERS Safety Report 15835847 (Version 1)
Quarter: 2019Q1

REPORT INFORMATION
  Report Type: Spontaneous
  Country: CA (occurrence: CA)
  Receive Date: 20190117
  Receipt Date: 20190117
  Transmission Date: 20190417
  Serious: Yes (Other)
  Sender: FDA-Public Use
  Company Number: CA-CELLTRION INC.-2019CA017862

PATIENT

DRUGS (6)
  1. PREDNISONE. [Concomitant]
     Active Substance: PREDNISONE
     Dosage: UNK
  2. TRAMACET [Concomitant]
     Active Substance: ACETAMINOPHEN\TRAMADOL
     Dosage: UNK
  3. CYCLOBENZAPRINE. [Concomitant]
     Active Substance: CYCLOBENZAPRINE
     Dosage: UNK
  4. COSENTYX [Suspect]
     Active Substance: SECUKINUMAB
     Dosage: UNK
     Route: 065
  5. PERCOCET [OXYCODONE HYDROCHLORIDE; PARACETAMOL] [Concomitant]
     Dosage: UNK
  6. INFLIXIMAB PFIZER (UNKNOWN) [Suspect]
     Active Substance: INFLIXIMAB
     Indication: ANKYLOSING SPONDYLITIS
     Dosage: UNK
     Route: 042

REACTIONS (7)
  - Back pain [Recovered/Resolved]
  - Musculoskeletal stiffness [Recovered/Resolved]
  - Arthropathy [Recovered/Resolved]
  - Inflammatory bowel disease [Recovered/Resolved]
  - C-reactive protein abnormal [Recovered/Resolved]
  - Ankylosing spondylitis [Recovered/Resolved]
  - Inflammation [Recovered/Resolved]
